FAERS Safety Report 25075900 (Version 1)
Quarter: 2025Q1

REPORT INFORMATION
  Report Type: Spontaneous
  Country: US (occurrence: US)
  Receive Date: 20250313
  Receipt Date: 20250313
  Transmission Date: 20250409
  Serious: Yes (Hospitalization, Other)
  Sender: GLAXOSMITHKLINE
  Company Number: US-GSKCCFUS-Case-02244164_AE-122340

PATIENT

DRUGS (1)
  1. FLOVENT HFA [Suspect]
     Active Substance: FLUTICASONE PROPIONATE
     Indication: Gastrointestinal disorder
     Dosage: 4 PUFF(S), QD,220
     Route: 048
     Dates: start: 202211, end: 202211

REACTIONS (5)
  - Allergic gastroenteritis [Recovering/Resolving]
  - Loss of consciousness [Recovering/Resolving]
  - Surgery [Unknown]
  - Hypersensitivity [Unknown]
  - Off label use [Unknown]

NARRATIVE: CASE EVENT DATE: 20250101
